FAERS Safety Report 23990070 (Version 1)
Quarter: 2024Q2

REPORT INFORMATION
  Report Type: Spontaneous
  Country: US (occurrence: US)
  Receive Date: 20240619
  Receipt Date: 20240619
  Transmission Date: 20240716
  Serious: No
  Sender: FDA-Public Use
  Company Number: US-SA-SAC20240614000627

PATIENT
  Age: 65 Year
  Sex: Female

DRUGS (1)
  1. DUPIXENT [Suspect]
     Active Substance: DUPILUMAB
     Indication: Eczema
     Dosage: 300 MG, QOW
     Route: 058
     Dates: start: 20240222

REACTIONS (3)
  - Infection susceptibility increased [Not Recovered/Not Resolved]
  - Hordeolum [Not Recovered/Not Resolved]
  - Infected bite [Recovered/Resolved]

NARRATIVE: CASE EVENT DATE: 20240101
